FAERS Safety Report 16154227 (Version 1)
Quarter: 2019Q2

REPORT INFORMATION
  Report Type: Spontaneous
  Country: ES (occurrence: ES)
  Receive Date: 20190403
  Receipt Date: 20190403
  Transmission Date: 20190711
  Serious: Yes (Other)
  Sender: FDA-Public Use
  Company Number: ES-DRREDDYS-GER/SPN/18/0100036

PATIENT
  Age: 60 Year
  Sex: Female

DRUGS (2)
  1. IMATINIB. [Suspect]
     Active Substance: IMATINIB MESYLATE
     Dosage: 400 MILLIGRAM, DAILY
  2. IMATINIB. [Suspect]
     Active Substance: IMATINIB MESYLATE
     Indication: CHRONIC MYELOID LEUKAEMIA
     Dosage: 400 MG

REACTIONS (5)
  - Pseudoporphyria [Recovering/Resolving]
  - Skin laceration [Recovering/Resolving]
  - Hypertrichosis [Recovering/Resolving]
  - Blister [Recovering/Resolving]
  - Skin fragility [Recovering/Resolving]
